FAERS Safety Report 7661078-5 (Version None)
Quarter: 2011Q3

REPORT INFORMATION
  Report Type: 
  Country: None (occurrence: None)
  Receive Date: 20110805
  Receipt Date: 20100928
  Transmission Date: 20111222
  Serious: No
  Sender: FDA-Public Use
  Company Number: US-ABBOTT-10P-163-0675172-00

PATIENT
  Sex: Female
  Weight: 44.038 kg

DRUGS (4)
  1. ALENDRONATE SODIUM [Suspect]
     Indication: PRODUCT USED FOR UNKNOWN INDICATION
     Dates: start: 20100101, end: 20100601
  2. LISINOPRIL [Concomitant]
     Indication: BLOOD PRESSURE
     Dates: start: 20100701
  3. NIASPAN [Suspect]
     Indication: BLOOD CHOLESTEROL
     Dates: start: 20100101, end: 20100601
  4. ATENOLOL [Suspect]
     Indication: BLOOD PRESSURE
     Dates: start: 20100101, end: 20100601

REACTIONS (2)
  - RASH [None]
  - TOOTH DISORDER [None]
